FAERS Safety Report 25588337 (Version 5)
Quarter: 2025Q4

REPORT INFORMATION
  Report Type: Report from Study
  Country: US (occurrence: US)
  Receive Date: 20250722
  Receipt Date: 20251222
  Transmission Date: 20260118
  Serious: No
  Sender: SANDOZ
  Company Number: US-SANDOZ-SDZ2025US051546

PATIENT

DRUGS (2)
  1. GLATOPA [Suspect]
     Active Substance: GLATIRAMER ACETATE
     Indication: Product used for unknown indication
     Dosage: UNK
  2. GLATOPA [Suspect]
     Active Substance: GLATIRAMER ACETATE

REACTIONS (3)
  - Circumstance or information capable of leading to medication error [Unknown]
  - Device mechanical issue [Unknown]
  - Device leakage [Unknown]
